FAERS Safety Report 14848842 (Version 1)
Quarter: 2018Q2

REPORT INFORMATION
  Report Type: Spontaneous
  Country: CZ (occurrence: CZ)
  Receive Date: 20180504
  Receipt Date: 20180504
  Transmission Date: 20180711
  Serious: Yes (Hospitalization)
  Sender: FDA-Public Use
  Company Number: CZ-EISAI MEDICAL RESEARCH-EC-2018-039335

PATIENT
  Age: 45 Year
  Sex: Male

DRUGS (1)
  1. FYCOMPA [Suspect]
     Active Substance: PERAMPANEL
     Indication: PRESCRIPTION DRUG USED WITHOUT A PRESCRIPTION
     Dosage: UNKNOWN
     Route: 048
     Dates: start: 20180425, end: 20180425

REACTIONS (4)
  - Aggression [Recovered/Resolved]
  - Prescription drug used without a prescription [Recovered/Resolved]
  - Suicide attempt [Recovered/Resolved]
  - Psychotic disorder [Recovered/Resolved]

NARRATIVE: CASE EVENT DATE: 20180425
